FAERS Safety Report 11702798 (Version 3)
Quarter: 2016Q4

REPORT INFORMATION
  Report Type: Report from Study
  Country: US (occurrence: US)
  Receive Date: 20151105
  Receipt Date: 20161212
  Transmission Date: 20170206
  Serious: Yes (Hospitalization)
  Sender: FDA-Public Use
  Company Number: US-EISAI MEDICAL RESEARCH-EC-2015-010641

PATIENT
  Age: 77 Year
  Sex: Male
  Weight: 68.5 kg

DRUGS (28)
  1. LENVIMA [Suspect]
     Active Substance: LENVATINIB
     Route: 048
  2. LENVIMA [Suspect]
     Active Substance: LENVATINIB
     Route: 048
     Dates: start: 2016, end: 2016
  3. LENVIMA [Suspect]
     Active Substance: LENVATINIB
     Route: 048
     Dates: start: 2016
  4. ENALAPRIL MALEATE. [Concomitant]
     Active Substance: ENALAPRIL MALEATE
  5. ASPIRIN. [Concomitant]
     Active Substance: ASPIRIN
  6. LENVIMA [Suspect]
     Active Substance: LENVATINIB
     Route: 048
     Dates: start: 201604, end: 20160604
  7. CLONIDINE. [Concomitant]
     Active Substance: CLONIDINE
  8. FENTANYL. [Concomitant]
     Active Substance: FENTANYL
  9. LORAZEPAM. [Concomitant]
     Active Substance: LORAZEPAM
  10. LEVOXYL [Concomitant]
     Active Substance: LEVOTHYROXINE SODIUM
  11. FLOMAX [Concomitant]
     Active Substance: TAMSULOSIN HYDROCHLORIDE
  12. LENVIMA [Suspect]
     Active Substance: LENVATINIB
     Route: 048
     Dates: start: 20151029
  13. FERROUS SULFATE. [Concomitant]
     Active Substance: FERROUS SULFATE
  14. ENSURE [Concomitant]
     Active Substance: AMINO ACIDS\DEXTROSE\ELECTROLYTES NOS\SOYBEAN OIL\VITAMINS
  15. LENVIMA [Suspect]
     Active Substance: LENVATINIB
     Route: 048
     Dates: end: 201604
  16. METOPROLOL TARTRATE. [Concomitant]
     Active Substance: METOPROLOL TARTRATE
  17. PERCOCET [Concomitant]
     Active Substance: ACETAMINOPHEN\OXYCODONE HYDROCHLORIDE
  18. LENVIMA [Suspect]
     Active Substance: LENVATINIB
     Indication: THYROID CANCER
     Route: 048
     Dates: start: 20150908, end: 201510
  19. FENOFIBRATE. [Concomitant]
     Active Substance: FENOFIBRATE
  20. TAMSULOSIN HCL [Concomitant]
     Active Substance: TAMSULOSIN
  21. CYCLOBENZAPRINE HCL [Concomitant]
     Active Substance: CYCLOBENZAPRINE HYDROCHLORIDE
  22. VITAMIN D [Concomitant]
     Active Substance: CHOLECALCIFEROL
  23. GABAPENTIN. [Concomitant]
     Active Substance: GABAPENTIN
  24. XANAX [Suspect]
     Active Substance: ALPRAZOLAM
     Indication: PRODUCT USED FOR UNKNOWN INDICATION
     Dosage: UNKNOWN
     Route: 065
     Dates: start: 201510
  25. PREDNISONE. [Concomitant]
     Active Substance: PREDNISONE
  26. ONDANSETRON HCL [Concomitant]
     Active Substance: ONDANSETRON HYDROCHLORIDE
  27. VITAMIN B-50 COMPLEX [Concomitant]
  28. AMOXICILLIN. [Concomitant]
     Active Substance: AMOXICILLIN

REACTIONS (17)
  - Oropharyngeal pain [Unknown]
  - Cystitis [Unknown]
  - Vomiting [Unknown]
  - Pneumonia [Unknown]
  - Epistaxis [Unknown]
  - Fall [Unknown]
  - Altered state of consciousness [Unknown]
  - Cholelithiasis [Unknown]
  - Fatigue [Not Recovered/Not Resolved]
  - Hypertension [Not Recovered/Not Resolved]
  - Headache [Recovered/Resolved]
  - Gastroenteritis viral [Unknown]
  - Viral infection [Recovered/Resolved]
  - Diarrhoea [Unknown]
  - Decreased appetite [Unknown]
  - Candida infection [Unknown]
  - Asthenia [Unknown]

NARRATIVE: CASE EVENT DATE: 2015
